FAERS Safety Report 17532004 (Version 1)
Quarter: 2020Q1

REPORT INFORMATION
  Report Type: Spontaneous
  Country: GB (occurrence: GB)
  Receive Date: 20200311
  Receipt Date: 20200311
  Transmission Date: 20200409
  Serious: Yes (Other)
  Sender: FDA-Public Use
  Company Number: GB-LUNDBECK-DKLU3013731

PATIENT
  Age: 4 Year

DRUGS (2)
  1. CLOBAZAM (ORAL SUSPENSION) [Suspect]
     Active Substance: CLOBAZAM
     Indication: SEIZURE
     Route: 048
     Dates: start: 20200130, end: 20200203
  2. CLOBAZAM. [Suspect]
     Active Substance: CLOBAZAM
     Indication: SEIZURE
     Route: 048
     Dates: start: 20200207, end: 20200210

REACTIONS (1)
  - Mouth ulceration [Recovering/Resolving]
